FAERS Safety Report 6592929-3 (Version None)
Quarter: 2010Q1

REPORT INFORMATION
  Report Type: 
  Country: None (occurrence: None)
  Receive Date: 20100212
  Receipt Date: 20100131
  Transmission Date: 20100710
  Serious: Yes (Hospitalization)
  Sender: FDA-Public Use
  Company Number: WAES 0811FRA00063

PATIENT
  Age: 64 Year
  Sex: Male

DRUGS (9)
  1. CAP VORINOSTAT [Suspect]
     Indication: MYELODYSPLASTIC SYNDROME
     Dosage: 400 MG/DAILY, PO, 400 MG/DAILY, PO
     Route: 048
     Dates: start: 20081002, end: 20081008
  2. CAP VORINOSTAT [Suspect]
     Indication: MYELODYSPLASTIC SYNDROME
     Dosage: 400 MG/DAILY, PO, 400 MG/DAILY, PO
     Route: 048
     Dates: start: 20081105, end: 20081112
  3. CYTARABINE [Suspect]
     Indication: MYELODYSPLASTIC SYNDROME
     Dosage: 10 MG/M2/D; IV
     Route: 042
     Dates: start: 20080919, end: 20081002
  4. CYTARABINE [Suspect]
     Indication: MYELODYSPLASTIC SYNDROME
     Dosage: 20 MG/M2/D; IV
     Route: 042
     Dates: start: 20081022, end: 20081105
  5. ACETYLCYSTEINE [Concomitant]
  6. BROMAZEPAM [Concomitant]
  7. VALSARTAN AND HYDROCHLOROTHIAZIDE [Concomitant]
  8. PAROXETINE HCL [Concomitant]
  9. POLYETHYLENE GLYCOL 4000 [Concomitant]

REACTIONS (1)
  - FEBRILE BONE MARROW APLASIA [None]
